FAERS Safety Report 5924578-1 (Version None)
Quarter: 2008Q4

REPORT INFORMATION
  Report Type: 
  Country: None (occurrence: None)
  Receive Date: 20081020
  Receipt Date: 20081001
  Transmission Date: 20090506
  Serious: Yes (Other)
  Sender: FDA-Public Use
  Company Number: FR-PFIZER INC-2008086712

PATIENT
  Age: 80 Year
  Sex: Male

DRUGS (1)
  1. SOLU-MEDROL [Suspect]
     Route: 042

REACTIONS (2)
  - AGITATION [None]
  - HALLUCINATION [None]
